FAERS Safety Report 5679480-X (Version None)
Quarter: 2008Q1

REPORT INFORMATION
  Report Type: 
  Country: None (occurrence: None)
  Receive Date: 20080321
  Receipt Date: 20080305
  Transmission Date: 20080703
  Serious: Yes (Hospitalization)
  Sender: FDA-Public Use
  Company Number: 2007BI016046

PATIENT
  Age: 56 Year
  Sex: Female

DRUGS (12)
  1. AVONEX [Suspect]
     Indication: MULTIPLE SCLEROSIS
     Dosage: 15 UG;QW;IM
     Route: 030
     Dates: start: 20070626
  2. TERNELIN [Concomitant]
  3. CYANOCOBALAMIN [Concomitant]
  4. MOBIC [Concomitant]
  5. MEVALOTIN [Concomitant]
  6. DEPAKENE [Concomitant]
  7. LANDSEN [Concomitant]
  8. SELBEX [Concomitant]
  9. MAGNITT [Concomitant]
  10. GABAPEN [Concomitant]
  11. LOXONIN [Concomitant]
  12. MUCOSTA [Concomitant]

REACTIONS (4)
  - ANAEMIA [None]
  - DEPRESSION [None]
  - HYPOPROTEINAEMIA [None]
  - PYREXIA [None]
